FAERS Safety Report 6841833-1 (Version None)
Quarter: 2010Q3

REPORT INFORMATION
  Report Type: 
  Country: None (occurrence: None)
  Receive Date: 20100714
  Receipt Date: 20070717
  Transmission Date: 20110219
  Serious: No
  Sender: FDA-Public Use
  Company Number: US-PFIZER INC-2007059470

PATIENT
  Age: 67 Year
  Sex: Male

DRUGS (2)
  1. CHANTIX [Suspect]
     Indication: SMOKING CESSATION THERAPY
     Dates: start: 20070701
  2. PEPCID [Concomitant]

REACTIONS (4)
  - ABNORMAL DREAMS [None]
  - DECREASED APPETITE [None]
  - FLATULENCE [None]
  - LOSS OF LIBIDO [None]
